FAERS Safety Report 14859527 (Version 1)
Quarter: 2018Q2

REPORT INFORMATION
  Report Type: Spontaneous
  Country: US (occurrence: US)
  Receive Date: 20180421
  Receipt Date: 20180421
  Transmission Date: 20180711
  Serious: Yes (Hospitalization)
  Sender: FDA-Public Use
  Company Number: None

PATIENT
  Age: 43 Year
  Sex: Male
  Weight: 59.8 kg

DRUGS (1)
  1. CISPLATIN. [Suspect]
     Active Substance: CISPLATIN
     Dates: end: 20180404

REACTIONS (4)
  - Hypophagia [None]
  - Pyrexia [None]
  - Mucosal inflammation [None]
  - Hyponatraemia [None]

NARRATIVE: CASE EVENT DATE: 20180417
